FAERS Safety Report 24429420 (Version 2)
Quarter: 2025Q1

REPORT INFORMATION
  Report Type: Spontaneous
  Country: US (occurrence: US)
  Receive Date: 20241011
  Receipt Date: 20250210
  Transmission Date: 20250408
  Serious: No
  Sender: SANOFI AVENTIS
  Company Number: US-SA-2024SA292926

PATIENT
  Age: 55 Year
  Sex: Female

DRUGS (2)
  1. KEVZARA [Suspect]
     Active Substance: SARILUMAB
     Indication: Arthropathy
     Dosage: 200 MG, QOW
     Route: 058
     Dates: start: 202408
  2. RINVOQ [Concomitant]
     Active Substance: UPADACITINIB

REACTIONS (4)
  - Arthralgia [Unknown]
  - Joint swelling [Unknown]
  - Urinary tract infection [Unknown]
  - Product use in unapproved indication [Unknown]

NARRATIVE: CASE EVENT DATE: 20240101
